FAERS Safety Report 10640569 (Version 1)
Quarter: 2014Q4

REPORT INFORMATION
  Report Type: Spontaneous
  Country: FR (occurrence: None)
  Receive Date: 20141205
  Receipt Date: 20141205
  Transmission Date: 20150529
  Serious: Yes (Other)
  Sender: FDA-Public Use
  Company Number: FR2014GSK028583

PATIENT
  Age: 46 Year
  Sex: Male

DRUGS (2)
  1. TIVICAY [Suspect]
     Active Substance: DOLUTEGRAVIR SODIUM
     Indication: PRODUCT USED FOR UNKNOWN INDICATION
     Dosage: 1UNK, 1D
     Route: 048
     Dates: start: 20140625, end: 20141123
  2. KIVEXA [Suspect]
     Active Substance: ABACAVIR SULFATE\LAMIVUDINE
     Indication: PRODUCT USED FOR UNKNOWN INDICATION
     Dosage: 1UNK, 1D
     Route: 048
     Dates: start: 20140625, end: 20141123

REACTIONS (8)
  - Fatigue [None]
  - Rash [None]
  - Myalgia [None]
  - Arthralgia [None]
  - Cholestasis [None]
  - Cell death [None]
  - Hypersensitivity [None]
  - Cough [None]

NARRATIVE: CASE EVENT DATE: 20141015
